FAERS Safety Report 6184700-1 (Version None)
Quarter: 2009Q2

REPORT INFORMATION
  Report Type: 
  Country: None (occurrence: None)
  Receive Date: 20090508
  Receipt Date: 20090430
  Transmission Date: 20091009
  Serious: Yes (Other)
  Sender: FDA-Public Use
  Company Number: US-ASTRAZENECA-2009UW04219

PATIENT
  Age: 40 Year
  Sex: Male
  Weight: 147.4 kg

DRUGS (14)
  1. SEROQUEL [Suspect]
     Indication: DEPRESSION
     Dosage: 25 MG TO 200 MG
     Route: 048
     Dates: start: 19980401, end: 20000301
  2. RISPERDAL [Concomitant]
     Dosage: 0.25 MG TO 0.5 MG
     Dates: start: 20010701, end: 20020401
  3. THORAZINE [Concomitant]
     Dates: start: 19980101
  4. HYDROXYZINE [Concomitant]
     Dates: start: 20010401
  5. DOXEPIN HCL [Concomitant]
     Dates: start: 20010701
  6. REMERON [Concomitant]
     Dates: start: 20010701
  7. TRAZODONE HCL [Concomitant]
     Dates: start: 20020401
  8. BUSPAR [Concomitant]
     Dates: start: 19990201
  9. EFFEXOR [Concomitant]
     Dosage: 75 MG TO 150 MG
     Dates: start: 19990201, end: 20011001
  10. DEPAKOTE [Concomitant]
     Dosage: 125 MG TO 500 MG
     Dates: start: 19990201, end: 20000301
  11. ALPRAZOLAM [Concomitant]
     Dates: start: 19990501, end: 20000301
  12. PROZAC [Concomitant]
     Dates: start: 20000301
  13. LORAZEPAM [Concomitant]
     Dates: start: 20000801, end: 20010901
  14. SERZONE [Concomitant]
     Dates: start: 20001101

REACTIONS (8)
  - BACK PAIN [None]
  - BLOOD CHOLESTEROL INCREASED [None]
  - BLOOD TRIGLYCERIDES INCREASED [None]
  - DIABETIC NEUROPATHY [None]
  - MUSCULOSKELETAL DISORDER [None]
  - NEUROPATHY PERIPHERAL [None]
  - SPINAL COLUMN STENOSIS [None]
  - TYPE 2 DIABETES MELLITUS [None]
